FAERS Safety Report 6420507-5 (Version None)
Quarter: 2009Q4

REPORT INFORMATION
  Report Type: 
  Country: None (occurrence: None)
  Receive Date: 20091021
  Receipt Date: 20090708
  Transmission Date: 20100525
  Serious: Yes (Hospitalization)
  Sender: FDA-Public Use
  Company Number: ALL1-2009-01691

PATIENT
  Age: 27 Year
  Sex: Male
  Weight: 83.9 kg

DRUGS (6)
  1. VYVANSE [Suspect]
     Indication: ATTENTION DEFICIT/HYPERACTIVITY DISORDER
     Dosage: 50 MG, 1X/DAY; QD: ORAL, 50 MG, 1X/DAY:QD, ORAL, 70 MG, 1X/DAY: QD, ORAL
     Route: 048
     Dates: start: 20080501, end: 20080501
  2. VYVANSE [Suspect]
     Indication: ATTENTION DEFICIT/HYPERACTIVITY DISORDER
     Dosage: 50 MG, 1X/DAY; QD: ORAL, 50 MG, 1X/DAY:QD, ORAL, 70 MG, 1X/DAY: QD, ORAL
     Route: 048
     Dates: start: 20090501, end: 20090501
  3. VYVANSE [Suspect]
     Indication: ATTENTION DEFICIT/HYPERACTIVITY DISORDER
     Dosage: 50 MG, 1X/DAY; QD: ORAL, 50 MG, 1X/DAY:QD, ORAL, 70 MG, 1X/DAY: QD, ORAL
     Route: 048
     Dates: start: 20090501
  4. CELEXA [Suspect]
     Dosage: MG, 1X/DAY: QD,  ORAL
     Route: 048
     Dates: start: 20080501, end: 20090601
  5. LITHIUM CARBONATE [Concomitant]
  6. AMBIEN [Concomitant]

REACTIONS (1)
  - HYPERSENSITIVITY [None]
